FAERS Safety Report 11125300 (Version 1)
Quarter: 2015Q2

REPORT INFORMATION
  Report Type: Spontaneous
  Country: US (occurrence: US)
  Receive Date: 20150520
  Receipt Date: 20150520
  Transmission Date: 20150821
  Serious: Yes (Other)
  Sender: FDA-Public Use
  Company Number: US-TEVA-562577USA

PATIENT
  Age: 52 Year
  Sex: Female

DRUGS (3)
  1. HORIZANT [Suspect]
     Active Substance: GABAPENTIN ENACARBIL
     Indication: RESTLESS LEGS SYNDROME
     Dosage: 600 MILLIGRAM DAILY;
     Route: 048
     Dates: start: 20150326, end: 20150428
  2. BACLOFEN. [Suspect]
     Active Substance: BACLOFEN
     Indication: MUSCLE SPASMS
     Route: 048
     Dates: start: 20150326, end: 20150428
  3. BACLOFEN. [Suspect]
     Active Substance: BACLOFEN
     Indication: RESTLESS LEGS SYNDROME

REACTIONS (2)
  - Muscle spasms [Recovering/Resolving]
  - Immobile [Recovering/Resolving]

NARRATIVE: CASE EVENT DATE: 201504
